FAERS Safety Report 19942733 (Version 1)
Quarter: 2021Q4

REPORT INFORMATION
  Report Type: Spontaneous
  Country: US (occurrence: US)
  Receive Date: 20211008
  Receipt Date: 20211008
  Transmission Date: 20220303
  Serious: Yes (Hospitalization)
  Sender: FDA-Public Use
  Company Number: None

PATIENT
  Sex: Male

DRUGS (10)
  1. UDENYCA [Suspect]
     Active Substance: PEGFILGRASTIM-CBQV
     Indication: Bone cancer
     Dosage: ?          OTHER FREQUENCY:EVERY 28 DAYS;
     Route: 058
     Dates: start: 20210625
  2. ATIVAN [Concomitant]
     Active Substance: LORAZEPAM
  3. BACTRIM [Concomitant]
     Active Substance: SULFAMETHOXAZOLE\TRIMETHOPRIM
  4. MELATONIN [Concomitant]
     Active Substance: MELATONIN
  5. MIRALAX [Concomitant]
     Active Substance: POLYETHYLENE GLYCOL 3350
  6. PEPCID [Concomitant]
     Active Substance: FAMOTIDINE
  7. SCOPOLAMINE [Concomitant]
     Active Substance: SCOPOLAMINE
  8. XARELTO [Concomitant]
     Active Substance: RIVAROXABAN
  9. ZOFRAN [Concomitant]
     Active Substance: ONDANSETRON HYDROCHLORIDE
  10. ZEPREXA [Concomitant]

REACTIONS (2)
  - Surgery [None]
  - Intentional dose omission [None]
